FAERS Safety Report 20342207 (Version 2)
Quarter: 2022Q4

REPORT INFORMATION
  Report Type: Spontaneous
  Country: DE (occurrence: DE)
  Receive Date: 20220117
  Receipt Date: 20221026
  Transmission Date: 20230112
  Serious: Yes (Hospitalization, Other)
  Sender: FDA-Public Use
  Company Number: DE-ANIPHARMA-2022-DE-000007

PATIENT
  Age: 91 Year
  Sex: Female

DRUGS (15)
  1. CANDESARTAN CILEXETIL [Suspect]
     Active Substance: CANDESARTAN CILEXETIL
     Indication: Product used for unknown indication
     Dosage: 16 MG DAILY
     Route: 065
  2. METOPROLOL [Concomitant]
     Active Substance: METOPROLOL
     Dosage: 47.5 MG DAILY
     Route: 065
  3. NALOXONE HYDROCHLORIDE\OXYCODONE HYDROCHLORIDE [Concomitant]
     Active Substance: NALOXONE HYDROCHLORIDE\OXYCODONE HYDROCHLORIDE
     Dosage: 5/2.5 MG, 2-0-1-0
     Route: 065
  4. PHENPROCOUMON [Concomitant]
     Active Substance: PHENPROCOUMON
     Route: 065
  5. POLYETHYLENE GLYCOL 3350\POTASSIUM CHLORIDE\SODIUM BICARBONATE\SODIUM [Suspect]
     Active Substance: POLYETHYLENE GLYCOL 3350\POTASSIUM CHLORIDE\SODIUM BICARBONATE\SODIUM CHLORIDE
     Dosage: UNK UNK, QD
     Route: 065
  6. POTASSIUM CHLORIDE [Suspect]
     Active Substance: POTASSIUM CHLORIDE
     Route: 048
  7. FOLIC ACID [Concomitant]
     Active Substance: FOLIC ACID
     Dosage: .4 MG DAILY
     Route: 065
  8. POTASSIUM [Suspect]
     Active Substance: POTASSIUM
     Route: 065
  9. TORSEMIDE [Suspect]
     Active Substance: TORSEMIDE
     Dosage: 200 MG UNK
     Route: 065
  10. AMLODIPINE [Concomitant]
     Active Substance: AMLODIPINE BESYLATE
     Dosage: 5 MG, 0.5-0-1-0
     Route: 065
  11. FENOTEROL [Concomitant]
     Active Substance: FENOTEROL
     Dosage: DEMAND, METERED DOSE INHALER
     Route: 065
  12. FOLIC ACID [Concomitant]
     Active Substance: FOLIC ACID
     Dosage: .4 MG DAILY
     Route: 065
  13. NITROGLYCERIN [Concomitant]
     Active Substance: NITROGLYCERIN
     Dosage: .4 MG DAILY
     Route: 065
  14. LEVOTHYROXINE SODIUM [Suspect]
     Active Substance: LEVOTHYROXINE SODIUM
     Dosage: .75 UG DAILY
     Route: 065
  15. MELPERONE [Concomitant]
     Active Substance: MELPERONE
     Dosage: 25 MG DAILY
     Route: 065

REACTIONS (17)
  - Atrial fibrillation [Unknown]
  - Oedema peripheral [Unknown]
  - Systemic infection [Unknown]
  - Musculoskeletal pain [Unknown]
  - Diarrhoea [Unknown]
  - Renal impairment [Unknown]
  - Hypotension [Unknown]
  - Hyponatraemia [Unknown]
  - Acute kidney injury [Unknown]
  - Electrocardiogram abnormal [Unknown]
  - Coronavirus test positive [Unknown]
  - General physical health deterioration [Unknown]
  - Dehydration [Unknown]
  - Hyperkalaemia [Unknown]
  - Metabolic acidosis [Unknown]
  - Fall [Unknown]
  - Disorientation [Unknown]
